FAERS Safety Report 9548108 (Version 1)
Quarter: 2013Q3

REPORT INFORMATION
  Report Type: Report from Study
  Country: US (occurrence: US)
  Receive Date: 20130924
  Receipt Date: 20130924
  Transmission Date: 20140515
  Serious: Yes (Other)
  Sender: FDA-Public Use
  Company Number: US-ROCHE-1272840

PATIENT
  Age: 52 Year
  Sex: Female

DRUGS (1)
  1. KADCYLA [Suspect]
     Indication: BREAST CANCER
     Route: 042

REACTIONS (6)
  - Bone cancer [Unknown]
  - Malignant pleural effusion [Unknown]
  - Haematological malignancy [Unknown]
  - Dyspnoea [Unknown]
  - Anaemia [Unknown]
  - Pain [Unknown]
